FAERS Safety Report 17093396 (Version 6)
Quarter: 2023Q2

REPORT INFORMATION
  Report Type: Report from Study
  Country: DE (occurrence: DE)
  Receive Date: 20191129
  Receipt Date: 20230623
  Transmission Date: 20230722
  Serious: Yes (Hospitalization)
  Sender: FDA-Public Use
  Company Number: None

PATIENT
  Age: 17 Year
  Sex: Female
  Weight: 52.5 kg

DRUGS (4)
  1. ILARIS [Suspect]
     Active Substance: CANAKINUMAB
     Indication: Cryopyrin associated periodic syndrome
     Dosage: 300 MG
     Route: 058
     Dates: start: 20180108
  2. ILARIS [Suspect]
     Active Substance: CANAKINUMAB
     Indication: Muckle-Wells syndrome
     Dosage: 300 MG
     Route: 058
     Dates: start: 20191111
  3. ILARIS [Suspect]
     Active Substance: CANAKINUMAB
     Dosage: 300 MG
     Route: 058
     Dates: end: 20230203
  4. CARBIMAZOLE [Concomitant]
     Active Substance: CARBIMAZOLE
     Indication: Graves^ disease
     Dosage: 20 MG, BID
     Route: 048
     Dates: start: 20180611

REACTIONS (3)
  - Pneumonia [Recovered/Resolved]
  - Respiration abnormal [Not Recovered/Not Resolved]
  - Pharyngitis [Recovered/Resolved]

NARRATIVE: CASE EVENT DATE: 20191120
